FAERS Safety Report 5303575-3 (Version None)
Quarter: 2007Q2

REPORT INFORMATION
  Report Type: 
  Country: None (occurrence: None)
  Receive Date: 20070420
  Receipt Date: 20070410
  Transmission Date: 20071010
  Serious: Yes (Death, Other)
  Sender: FDA-Public Use
  Company Number: US-PFIZER INC-2007029064

PATIENT
  Sex: Male
  Weight: 89.8 kg

DRUGS (1)
  1. BEXTRA [Suspect]
     Dates: start: 20020101, end: 20030924

REACTIONS (4)
  - ANXIETY [None]
  - MYOCARDIAL INFARCTION [None]
  - SKIN REACTION [None]
  - STRESS [None]
